FAERS Safety Report 13054020 (Version 1)
Quarter: 2016Q4

REPORT INFORMATION
  Report Type: Spontaneous
  Country: US (occurrence: US)
  Receive Date: 20161221
  Receipt Date: 20161221
  Transmission Date: 20170207
  Serious: Yes (Hospitalization, Disabling)
  Sender: FDA-Public Use
  Company Number: None

PATIENT
  Age: 63 Year
  Weight: 65.25 kg

DRUGS (5)
  1. WARFARIN [Concomitant]
     Active Substance: WARFARIN
  2. AMIODARONE [Suspect]
     Active Substance: AMIODARONE
     Indication: ATRIAL FIBRILLATION
     Route: 048
     Dates: start: 20161019, end: 20161207
  3. LEXAPRO [Concomitant]
     Active Substance: ESCITALOPRAM OXALATE
  4. ASPIRIN. [Concomitant]
     Active Substance: ASPIRIN
  5. XANAX [Concomitant]
     Active Substance: ALPRAZOLAM

REACTIONS (2)
  - Optic nerve injury [None]
  - Blindness [None]

NARRATIVE: CASE EVENT DATE: 20161027
